FAERS Safety Report 12910384 (Version 1)
Quarter: 2016Q4

REPORT INFORMATION
  Report Type: Spontaneous
  Country: US (occurrence: US)
  Receive Date: 20161104
  Receipt Date: 20161104
  Transmission Date: 20170207
  Serious: No
  Sender: FDA-Public Use
  Company Number: US-TARO-2016TAR00229

PATIENT
  Age: 75 Year
  Sex: Male
  Weight: 117.91 kg

DRUGS (17)
  1. TRIAMCINOLONE 0.1% [Suspect]
     Active Substance: TRIAMCINOLONE
     Indication: PSORIASIS
     Dosage: UNK
     Route: 061
     Dates: start: 2012, end: 201502
  2. BETAMETHASONE 0.05% [Suspect]
     Active Substance: BETAMETHASONE
     Indication: PSORIASIS
     Dosage: UNK
     Route: 061
     Dates: start: 2012, end: 201502
  3. LIPITOR [Concomitant]
     Active Substance: ATORVASTATIN CALCIUM
     Dosage: 10 MG, 1X/DAY
     Dates: start: 2008
  4. METFORMIN [Concomitant]
     Active Substance: METFORMIN HYDROCHLORIDE
     Dosage: 1000 MG, 2X/DAY
     Dates: start: 2003
  5. ACTOS [Concomitant]
     Active Substance: PIOGLITAZONE HYDROCHLORIDE
     Dosage: 30 MG, 1X/DAY
     Dates: start: 2003
  6. LYRICA [Concomitant]
     Active Substance: PREGABALIN
     Dosage: UNK CAPSULES, 1X/DAY
     Route: 048
     Dates: start: 2015, end: 201512
  7. LISINOPRIL. [Concomitant]
     Active Substance: LISINOPRIL
     Dosage: 10 MG, 1X/DAY
     Dates: start: 2007
  8. BETAMETHASONE 0.05% [Suspect]
     Active Substance: BETAMETHASONE
     Dosage: UNK
     Dates: start: 2015
  9. FINASTERIDE. [Concomitant]
     Active Substance: FINASTERIDE
     Dosage: 5 MG, 1X/DAY
     Dates: start: 2008
  10. SYMBICORT [Concomitant]
     Active Substance: BUDESONIDE\FORMOTEROL FUMARATE DIHYDRATE
     Dosage: 160.45 (TWO PUFFS), 2X/DAY
     Dates: start: 2010
  11. OXYBUTYNIN [Concomitant]
     Active Substance: OXYBUTYNIN
     Dosage: 10 MG, 1X/DAY
     Dates: start: 2010
  12. PAXIL [Concomitant]
     Active Substance: PAROXETINE HYDROCHLORIDE
     Dosage: 20 MG, 1X/DAY
     Dates: start: 2010
  13. PLAVIX [Concomitant]
     Active Substance: CLOPIDOGREL BISULFATE
     Dosage: 75 MG, 1X/DAY
     Dates: start: 2007
  14. TRIAMCINOLONE 0.1% [Suspect]
     Active Substance: TRIAMCINOLONE
     Dosage: UNK
     Dates: start: 2015
  15. LYRICA [Concomitant]
     Active Substance: PREGABALIN
     Dosage: 75 MG, 1X/DAY
     Route: 048
     Dates: start: 201512
  16. GLIMEPRIDE [Concomitant]
     Active Substance: GLIMEPIRIDE
     Dosage: 4 MG, 2X/DAY
     Dates: start: 2003
  17. TIZANIDINE. [Concomitant]
     Active Substance: TIZANIDINE
     Dosage: 4 MG, 1X/DAY
     Dates: start: 2009

REACTIONS (1)
  - Drug ineffective [Unknown]

NARRATIVE: CASE EVENT DATE: 201502
